FAERS Safety Report 5383880-5 (Version None)
Quarter: 2007Q3

REPORT INFORMATION
  Report Type: 
  Country: None (occurrence: None)
  Receive Date: 20070711
  Receipt Date: 20070709
  Transmission Date: 20080115
  Serious: Yes (Hospitalization)
  Sender: FDA-Public Use
  Company Number: GB-BRISTOL-MYERS SQUIBB COMPANY-13838768

PATIENT
  Age: 64 Year
  Sex: Female

DRUGS (4)
  1. KENALOG-10 [Suspect]
     Route: 051
     Dates: start: 20070521, end: 20070521
  2. LIDOCAINE [Suspect]
     Route: 051
     Dates: start: 20070521
  3. CODEINE PHOSPHATE AND ACETAMINOPHEN [Concomitant]
  4. PARACETAMOL [Concomitant]

REACTIONS (2)
  - CHEST DISCOMFORT [None]
  - PRURITUS [None]
